FAERS Safety Report 14078640 (Version 1)
Quarter: 2017Q4

REPORT INFORMATION
  Report Type: Spontaneous
  Country: US (occurrence: US)
  Receive Date: 20171012
  Receipt Date: 20171012
  Transmission Date: 20180321
  Serious: No
  Sender: FDA-Public Use
  Company Number: None

PATIENT
  Sex: Female

DRUGS (1)
  1. CONTRAVE [Suspect]
     Active Substance: BUPROPION HYDROCHLORIDE\NALTREXONE HYDROCHLORIDE
     Route: 048
     Dates: start: 20170201, end: 20170801

REACTIONS (8)
  - Depression [None]
  - Anger [None]
  - Fatigue [None]
  - Suicidal ideation [None]
  - Nausea [None]
  - Headache [None]
  - Insomnia [None]
  - Anxiety [None]
